FAERS Safety Report 7700864-X (Version None)
Quarter: 2011Q3

REPORT INFORMATION
  Report Type: 
  Country: None (occurrence: None)
  Receive Date: 20110822
  Receipt Date: 20110808
  Transmission Date: 20111222
  Serious: Yes (Hospitalization, Other)
  Sender: FDA-Public Use
  Company Number: PHHY2011US51428

PATIENT
  Sex: Female

DRUGS (14)
  1. CELEBREX [Concomitant]
     Dosage: 100 MG, UNK
  2. AZOPT [Concomitant]
     Dosage: 1 %, UNK
  3. CALCIUM CARBONATE [Concomitant]
  4. ASPIRIN [Concomitant]
  5. CALCIUM CARBONATE [Concomitant]
     Dosage: 50000 U, UNK
  6. ASPIRIN [Concomitant]
  7. NORVASC [Concomitant]
     Dosage: 5 MG, UNK
  8. THYROID TAB [Concomitant]
  9. VITAMINS NOS [Concomitant]
  10. AMLODIPINE BESYLATE [Concomitant]
     Indication: HYPERTENSION
     Dosage: 5 MG (AT NIGHT), UNK
  11. TEKTURNA [Suspect]
     Indication: HYPERTENSION
     Dosage: 150 MG, UNK
     Dates: start: 20100901
  12. VITAMIN D [Concomitant]
  13. BETIMOL [Concomitant]
  14. WATER PILLS [Concomitant]

REACTIONS (6)
  - HYPOTENSION [None]
  - BLOOD PRESSURE INCREASED [None]
  - HEADACHE [None]
  - UPPER LIMB FRACTURE [None]
  - CONFUSIONAL STATE [None]
  - FALL [None]
